FAERS Safety Report 18646741 (Version 1)
Quarter: 2020Q4

REPORT INFORMATION
  Report Type: Other
  Country: KR (occurrence: KR)
  Receive Date: 20201222
  Receipt Date: 20201222
  Transmission Date: 20210114
  Serious: Yes (Other)
  Sender: FDA-Public Use
  Company Number: KR-ROCHE-2650285

PATIENT
  Age: 43 Year
  Sex: Female

DRUGS (30)
  1. NASERON [Concomitant]
     Active Substance: RAMOSETRON HYDROCHLORIDE
  2. MACPERAN [Concomitant]
     Active Substance: METOCLOPRAMIDE HYDROCHLORIDE
     Route: 042
     Dates: start: 20200415, end: 20200415
  3. SUPRAX [Concomitant]
     Active Substance: CEFIXIME
     Dates: start: 20200515, end: 20200517
  4. NEURONTIN [Concomitant]
     Active Substance: GABAPENTIN
  5. CYMBALTA [Concomitant]
     Active Substance: DULOXETINE HYDROCHLORIDE
  6. LYRICA [Concomitant]
     Active Substance: PREGABALIN
  7. PERTUZUMAB. [Suspect]
     Active Substance: PERTUZUMAB
     Route: 065
     Dates: start: 20200303
  8. TRASTUZUMAB. [Suspect]
     Active Substance: TRASTUZUMAB
     Route: 042
     Dates: start: 20200303, end: 20200525
  9. LOPERAMIDE [Concomitant]
     Active Substance: LOPERAMIDE
  10. CRAVIT [Concomitant]
     Active Substance: LEVOFLOXACIN
     Route: 048
     Dates: start: 20200515, end: 20200517
  11. STOGAR [Concomitant]
     Active Substance: LAFUTIDINE
     Route: 048
     Dates: start: 20200515, end: 20200515
  12. PERTUZUMAB. [Suspect]
     Active Substance: PERTUZUMAB
     Route: 065
     Dates: start: 20200504
  13. TRASTUZUMAB. [Suspect]
     Active Substance: TRASTUZUMAB
     Indication: BREAST CANCER
     Route: 042
     Dates: start: 20200211
  14. PERTUZUMAB. [Suspect]
     Active Substance: PERTUZUMAB
     Indication: BREAST CANCER
     Route: 065
     Dates: start: 20200211
  15. PERTUZUMAB. [Suspect]
     Active Substance: PERTUZUMAB
     Route: 065
     Dates: start: 20200413
  16. DOCETAXEL. [Suspect]
     Active Substance: DOCETAXEL
     Indication: BREAST CANCER
     Route: 042
     Dates: start: 20200212
  17. DEXAMETHASONE. [Concomitant]
     Active Substance: DEXAMETHASONE
  18. LONQUEX [Concomitant]
     Active Substance: LIPEGFILGRASTIM
  19. ESOMEZOL [Concomitant]
  20. MAXIPIME [Concomitant]
     Active Substance: CEFEPIME HYDROCHLORIDE
     Route: 042
     Dates: start: 20200515, end: 20200515
  21. PERTUZUMAB. [Suspect]
     Active Substance: PERTUZUMAB
     Route: 065
     Dates: start: 20200324
  22. PALSERON [Concomitant]
  23. EMEND [Concomitant]
     Active Substance: APREPITANT
  24. MACPERAN [Concomitant]
     Active Substance: METOCLOPRAMIDE HYDROCHLORIDE
     Route: 042
     Dates: start: 20200506, end: 20200527
  25. TAGAMET [Concomitant]
     Active Substance: CIMETIDINE
  26. TANTUM [Concomitant]
     Active Substance: BENZYDAMINE HYDROCHLORIDE
  27. PERTUZUMAB. [Suspect]
     Active Substance: PERTUZUMAB
     Route: 065
     Dates: start: 20200525
  28. NEOPLATIN (SOUTH KOREA) [Concomitant]
  29. SANCUSO [Concomitant]
     Active Substance: GRANISETRON
  30. GASTER (SOUTH KOREA) [Concomitant]

REACTIONS (8)
  - Fatigue [Recovered/Resolved]
  - Pyrexia [Recovered/Resolved]
  - Gastric ulcer [Recovered/Resolved]
  - Chills [Recovered/Resolved]
  - Nausea [Recovered/Resolved]
  - Rash pustular [Recovered/Resolved]
  - Myalgia [Recovered/Resolved]
  - Palmar-plantar erythrodysaesthesia syndrome [Recovered/Resolved]

NARRATIVE: CASE EVENT DATE: 20200211
